FAERS Safety Report 12663382 (Version 2)
Quarter: 2016Q3

REPORT INFORMATION
  Report Type: Spontaneous
  Country: US (occurrence: US)
  Receive Date: 20160818
  Receipt Date: 20160921
  Transmission Date: 20161109
  Serious: Yes (Death)
  Sender: FDA-Public Use
  Company Number: US-BAUSCH-BL-2016-019702

PATIENT
  Sex: Female

DRUGS (1)
  1. XENAZINE [Suspect]
     Active Substance: TETRABENAZINE
     Indication: HUNTINGTON^S DISEASE
     Dosage: ONE 12.5 MG ORALLY AT 7 AM AND ONE 12.5 MG TABLET AT 3 PM
     Route: 048
     Dates: start: 201605

REACTIONS (1)
  - Neoplasm malignant [Fatal]
